FAERS Safety Report 21283880 (Version 3)
Quarter: 2023Q1

REPORT INFORMATION
  Report Type: Spontaneous
  Country: AU (occurrence: AU)
  Receive Date: 20220901
  Receipt Date: 20230310
  Transmission Date: 20230418
  Serious: Yes (Hospitalization, Other)
  Sender: FDA-Public Use
  Company Number: AU-ALLERGAN-2228321US

PATIENT
  Sex: Male

DRUGS (34)
  1. ASENAPINE MALEATE [Suspect]
     Active Substance: ASENAPINE MALEATE
     Indication: Prophylaxis
     Dosage: UNK
  2. ASENAPINE MALEATE [Suspect]
     Active Substance: ASENAPINE MALEATE
     Indication: Schizophrenia
     Dosage: 30 MG, QD
     Route: 048
  3. ASENAPINE MALEATE [Suspect]
     Active Substance: ASENAPINE MALEATE
     Dosage: 10 MG
     Route: 048
  4. ASENAPINE MALEATE [Suspect]
     Active Substance: ASENAPINE MALEATE
     Dosage: 20 MG
     Route: 048
  5. ASENAPINE MALEATE [Suspect]
     Active Substance: ASENAPINE MALEATE
     Dosage: 10 MG, PLACE 1 WAFER UNDER THE TONGUE IN THE MORNING AND 2 WAFERS UNDER THE TONGUE IN THE EVENING
     Route: 060
  6. ASENAPINE MALEATE [Suspect]
     Active Substance: ASENAPINE MALEATE
     Dosage: 3 DOSE UNSPECIFIED , INTERVAL: 1 DAY; UNKNOWN
     Dates: start: 202201
  7. ASENAPINE MALEATE [Suspect]
     Active Substance: ASENAPINE MALEATE
     Dosage: 20 MG
     Route: 048
     Dates: start: 202201
  8. ASENAPINE MALEATE [Suspect]
     Active Substance: ASENAPINE MALEATE
     Dosage: 20 MG, QHS
     Route: 060
     Dates: start: 202201
  9. ASENAPINE MALEATE [Suspect]
     Active Substance: ASENAPINE MALEATE
     Dosage: 10 MG
     Route: 048
     Dates: start: 202201, end: 202201
  10. ASENAPINE MALEATE [Suspect]
     Active Substance: ASENAPINE MALEATE
     Dosage: 10 MG, QHS
     Route: 060
     Dates: start: 202201, end: 202201
  11. ASENAPINE MALEATE [Suspect]
     Active Substance: ASENAPINE MALEATE
     Dosage: 10 MG, QHS
     Route: 060
     Dates: start: 2021, end: 202110
  12. ASENAPINE MALEATE [Suspect]
     Active Substance: ASENAPINE MALEATE
     Dosage: 10 MG
     Route: 048
     Dates: start: 2021, end: 202110
  13. ASENAPINE MALEATE [Suspect]
     Active Substance: ASENAPINE MALEATE
     Dosage: 20 MG
     Route: 048
     Dates: start: 201912
  14. ASENAPINE MALEATE [Suspect]
     Active Substance: ASENAPINE MALEATE
     Dosage: 20 MG, QHS
     Route: 060
     Dates: start: 2019
  15. ASENAPINE MALEATE [Suspect]
     Active Substance: ASENAPINE MALEATE
     Dosage: 20 MG, QD
     Route: 060
     Dates: start: 2018
  16. ARIPIPRAZOLE [Suspect]
     Active Substance: ARIPIPRAZOLE
     Indication: Prophylaxis
     Dosage: 20 MG, QHS
     Route: 048
     Dates: start: 202205
  17. ARIPIPRAZOLE [Suspect]
     Active Substance: ARIPIPRAZOLE
     Indication: Schizophrenia
     Dosage: 30 MG, QHS
     Route: 048
     Dates: start: 201912
  18. ARIPIPRAZOLE [Suspect]
     Active Substance: ARIPIPRAZOLE
     Dosage: UNK
     Route: 048
  19. CLOMIPRAMINE HYDROCHLORIDE [Suspect]
     Active Substance: CLOMIPRAMINE HYDROCHLORIDE
     Indication: Schizophrenia
     Dosage: 25 MG, TAKE 5 TABLETS IN THE EVENING
     Route: 048
     Dates: start: 201912
  20. CLOMIPRAMINE HYDROCHLORIDE [Suspect]
     Active Substance: CLOMIPRAMINE HYDROCHLORIDE
     Dosage: 150 MG, QD
     Route: 048
     Dates: start: 2018
  21. CLOZAPINE [Suspect]
     Active Substance: CLOZAPINE
     Indication: Paranoia
     Dosage: UNK
     Dates: start: 20220224
  22. CLOZAPINE [Suspect]
     Active Substance: CLOZAPINE
     Dosage: 25 MILLIGRAM, 5 TIMES PER DAY, OD
     Dates: start: 20220223, end: 20220224
  23. CLOZAPINE [Suspect]
     Active Substance: CLOZAPINE
     Dosage: 12.5 MILLIGRAM, 5 TIMES PER DAY, OD
     Dates: start: 20220223, end: 20220224
  24. METFORMIN [Suspect]
     Active Substance: METFORMIN HYDROCHLORIDE
     Indication: Type 2 diabetes mellitus
     Dosage: UNK
     Dates: start: 2021
  25. METFORMIN [Suspect]
     Active Substance: METFORMIN HYDROCHLORIDE
     Dosage: 500 MG, QHS
  26. RISPERIDONE [Suspect]
     Active Substance: RISPERIDONE
     Indication: Product used for unknown indication
     Dosage: UNK
     Dates: start: 202111
  27. GEMFIBROZIL [Suspect]
     Active Substance: GEMFIBROZIL
     Indication: Hypercholesterolaemia
     Dosage: UNK
  28. GEMFIBROZIL [Suspect]
     Active Substance: GEMFIBROZIL
     Dosage: 600 MG
  29. ERYTHROMYCIN [Suspect]
     Active Substance: ERYTHROMYCIN
     Indication: Product used for unknown indication
  30. PALIPERIDONE [Concomitant]
     Active Substance: PALIPERIDONE
  31. REXULTI [Concomitant]
     Active Substance: BREXPIPRAZOLE
     Dosage: 3 MG
     Dates: end: 2018
  32. ASCORBIC ACID [Concomitant]
     Active Substance: ASCORBIC ACID
     Dosage: 500 MG
  33. ELEVIT [MINERALS NOS;VITAMINS NOS] [Concomitant]
  34. ATORVASTATIN [Concomitant]
     Active Substance: ATORVASTATIN
     Dosage: 40 MG

REACTIONS (24)
  - Lower respiratory tract infection [Unknown]
  - Myocarditis [Recovering/Resolving]
  - Electrocardiogram QT prolonged [Unknown]
  - Leukopenia [Unknown]
  - Suicidal ideation [Unknown]
  - Syncope [Recovered/Resolved]
  - Schizophrenia [Recovered/Resolved]
  - Type 2 diabetes mellitus [Recovering/Resolving]
  - Iron deficiency anaemia [Unknown]
  - Social anxiety disorder [Unknown]
  - COVID-19 [Recovered/Resolved]
  - Cholelithiasis [Recovered/Resolved]
  - Microcytic anaemia [Unknown]
  - Liver function test abnormal [Unknown]
  - SARS-CoV-2 test positive [Unknown]
  - Product use in unapproved indication [Unknown]
  - Condition aggravated [Unknown]
  - Malaise [Unknown]
  - Pancreatic steatosis [Unknown]
  - Prostatomegaly [Unknown]
  - Vomiting [Unknown]
  - Weight increased [Unknown]
  - Therapeutic product effect incomplete [Unknown]
  - Drug ineffective [Unknown]
